FAERS Safety Report 23609651 (Version 3)
Quarter: 2024Q2

REPORT INFORMATION
  Report Type: Spontaneous
  Country: US (occurrence: US)
  Receive Date: 20240308
  Receipt Date: 20240524
  Transmission Date: 20240715
  Serious: Yes (Hospitalization, Other)
  Sender: FDA-Public Use
  Company Number: US-BRISTOL-MYERS SQUIBB COMPANY-2024-035778

PATIENT
  Age: 58 Year
  Sex: Female

DRUGS (2)
  1. REVLIMID [Suspect]
     Active Substance: LENALIDOMIDE
     Indication: Plasma cell myeloma recurrent
     Dosage: DAILY FOR 14 DAYS ON AND 7 DAYS OFF
     Route: 048
  2. ZOLEDRONIC ACID [Concomitant]
     Active Substance: ZOLEDRONIC ACID
     Indication: Product used for unknown indication

REACTIONS (6)
  - Fall [Unknown]
  - Hand fracture [Unknown]
  - Renal disorder [Unknown]
  - Off label use [Unknown]
  - Fatigue [Unknown]
  - Thrombosis [Unknown]

NARRATIVE: CASE EVENT DATE: 20240419
